FAERS Safety Report 23264368 (Version 1)
Quarter: 2023Q4

REPORT INFORMATION
  Report Type: Spontaneous
  Country: CA (occurrence: CA)
  Receive Date: 20231205
  Receipt Date: 20231205
  Transmission Date: 20240110
  Serious: Yes (Hospitalization, Other)
  Sender: FDA-Public Use
  Company Number: CA-JNJFOC-20231183611

PATIENT
  Age: 19 Month
  Sex: Male

DRUGS (6)
  1. TOPAMAX [Suspect]
     Active Substance: TOPIRAMATE
     Indication: Infantile spasms
     Dosage: UNK
     Route: 065
  2. TOPAMAX [Suspect]
     Active Substance: TOPIRAMATE
     Indication: Epilepsy
  3. CLOBAZAM [Concomitant]
     Active Substance: CLOBAZAM
     Indication: Infantile spasms
     Dosage: UNK
     Route: 048
  4. CLOBAZAM [Concomitant]
     Active Substance: CLOBAZAM
     Indication: Epilepsy
  5. KEPPRA [Concomitant]
     Active Substance: LEVETIRACETAM
     Indication: Infantile spasms
     Dosage: UNK
     Route: 048
  6. KEPPRA [Concomitant]
     Active Substance: LEVETIRACETAM
     Indication: Epilepsy

REACTIONS (4)
  - Condition aggravated [Recovered/Resolved]
  - Hypokalaemia [Recovered/Resolved]
  - Renal tubular acidosis [Recovered/Resolved]
  - Off label use [Unknown]
